FAERS Safety Report 8419398-2 (Version None)
Quarter: 2012Q2

REPORT INFORMATION
  Report Type: 
  Country: None (occurrence: None)
  Receive Date: 20120607
  Receipt Date: 20120531
  Transmission Date: 20120825
  Serious: Yes (Hospitalization)
  Sender: FDA-Public Use
  Company Number: US-GLAXOSMITHKLINE-A0886829A

PATIENT
  Age: 70 Year
  Sex: Male

DRUGS (7)
  1. FLUOXETINE [Concomitant]
  2. GLIPIZIDE [Concomitant]
  3. ALLOPURINOL [Concomitant]
  4. AVANDIA [Suspect]
     Indication: TYPE 2 DIABETES MELLITUS
     Route: 048
     Dates: start: 20011109, end: 20091220
  5. GEMFIBROZIL [Concomitant]
  6. SIMVASTATIN [Concomitant]
  7. METOLAZONE [Concomitant]

REACTIONS (4)
  - CARDIAC FAILURE CONGESTIVE [None]
  - ATRIAL FIBRILLATION [None]
  - HEART RATE IRREGULAR [None]
  - RENAL FAILURE ACUTE [None]
